FAERS Safety Report 4615962-7 (Version None)
Quarter: 2005Q1

REPORT INFORMATION
  Report Type: 
  Country: None (occurrence: None)
  Receive Date: 20050318
  Receipt Date: 20050311
  Transmission Date: 20050727
  Serious: Yes (Death, Other)
  Sender: FDA-Public Use
  Company Number: 2005-00889

PATIENT
  Age: 41 Year
  Sex: Male

DRUGS (7)
  1. COLICHICINE (WATSON LABORATORIES) (COLCHICINE) TABLET, 0.6MG [Suspect]
     Indication: SUICIDE ATTEMPT
     Dosage: 20 MG, SINGLE, ORAL
     Route: 048
  2. JOSAMYCIN(JOSAMYCIN) [Suspect]
     Indication: SUICIDE ATTEMPT
     Dosage: 10000 MG, SINGLE
  3. VISCERALGIN(TIEMONIUM IODIDE) [Suspect]
     Indication: SUICIDE ATTEMPT
     Dosage: 20 CAPSUL, SINGLE
  4. COLCHIMAX(DICYCLOVERINE HYDROCHLORIDE) [Suspect]
     Indication: SUICIDE ATTEMPT
     Dosage: 20 TABLET, SINGLE, ORAL
     Route: 048
  5. LOPERAMIDE [Suspect]
     Indication: SUICIDE ATTEMPT
     Dosage: 40 MG, SINGLE, ORAL
     Route: 048
  6. ALLOPURINOL [Concomitant]
  7. SPIRONOLACTONE [Concomitant]

REACTIONS (3)
  - COMPLETED SUICIDE [None]
  - DRUG INTERACTION POTENTIATION [None]
  - DRUG TOXICITY [None]
